FAERS Safety Report 7676498-2 (Version None)
Quarter: 2011Q3

REPORT INFORMATION
  Report Type: 
  Country: None (occurrence: None)
  Receive Date: 20110805
  Receipt Date: 20110721
  Transmission Date: 20111222
  Serious: Yes (Life-Threatening, Hospitalization, Other)
  Sender: FDA-Public Use
  Company Number: 2011MA010504

PATIENT
  Age: 47 Year
  Sex: Male

DRUGS (1)
  1. VERAPAMIL HYDROCHLORIDE [Suspect]
     Indication: INTENTIONAL OVERDOSE
     Dosage: 63OO MG

REACTIONS (10)
  - CARDIOACTIVE DRUG LEVEL ABOVE THERAPEUTIC [None]
  - LETHARGY [None]
  - ATRIOVENTRICULAR BLOCK COMPLETE [None]
  - INTENTIONAL OVERDOSE [None]
  - BLOOD CALCIUM INCREASED [None]
  - SHOCK [None]
  - HYPOTENSION [None]
  - PLEURAL EFFUSION [None]
  - ILEUS [None]
  - HYPOXIA [None]
